FAERS Safety Report 14909724 (Version 1)
Quarter: 2018Q2

REPORT INFORMATION
  Report Type: Spontaneous
  Country: FR (occurrence: FR)
  Receive Date: 20180517
  Receipt Date: 20180517
  Transmission Date: 20180711
  Serious: Yes (Hospitalization, Other)
  Sender: FDA-Public Use
  Company Number: FR-GLAXOSMITHKLINE-FR2018084001

PATIENT
  Age: 91 Year
  Sex: Female
  Weight: 58 kg

DRUGS (6)
  1. ORAMORPH [Suspect]
     Active Substance: MORPHINE SULFATE
     Indication: GAIT DISTURBANCE
     Dosage: UNK
     Route: 048
  2. CLAVULANIC ACID [Suspect]
     Active Substance: CLAVULANIC ACID
     Indication: LUNG DISORDER
     Dosage: 3 DF, QD
     Route: 042
     Dates: start: 20180414, end: 20180414
  3. AMOXICILLINE [Suspect]
     Active Substance: AMOXICILLIN
     Indication: LUNG DISORDER
     Dosage: 3 G, QD
     Route: 042
     Dates: start: 20180414, end: 20180414
  4. HAVLANE [Suspect]
     Active Substance: LOPRAZOLAM
     Indication: SLEEP DISORDER THERAPY
     Dosage: 0.5 MG, QD
     Route: 048
     Dates: end: 20180411
  5. VENTOLINE [Suspect]
     Active Substance: ALBUTEROL
     Indication: LUNG DISORDER
     Dosage: UNK
     Route: 055
  6. FERROUS SULPHATE AND FOLIC ACID [Suspect]
     Active Substance: FERROUS SULFATE\FOLIC ACID
     Indication: PRODUCT USED FOR UNKNOWN INDICATION
     Dosage: 80 MG, QD
     Route: 048
     Dates: start: 201801, end: 20180411

REACTIONS (2)
  - Condition aggravated [Recovering/Resolving]
  - Liver injury [Recovering/Resolving]

NARRATIVE: CASE EVENT DATE: 201804
